FAERS Safety Report 10073609 (Version 1)
Quarter: 2014Q2

REPORT INFORMATION
  Report Type: Spontaneous
  Country: GB (occurrence: GB)
  Receive Date: 20140411
  Receipt Date: 20140411
  Transmission Date: 20141212
  Serious: Yes (Disabling)
  Sender: FDA-Public Use
  Company Number: GB-ELI_LILLY_AND_COMPANY-GB201404000115

PATIENT
  Age: 81 Year
  Sex: Male

DRUGS (2)
  1. GEMCITABINE HYDROCHLORIDE [Suspect]
     Indication: PRODUCT USED FOR UNKNOWN INDICATION
     Dosage: 1800 MG, SINGLE DOSE
     Route: 065
     Dates: start: 2013
  2. GEMCITABINE HYDROCHLORIDE [Suspect]
     Dosage: 1300 MG, 8 WEEKLY DOSES, 3 WEEKS ON 1 WEEK OFF
     Route: 065
     Dates: start: 2013

REACTIONS (1)
  - Visual acuity reduced [Unknown]
